FAERS Safety Report 19963985 (Version 2)
Quarter: 2021Q4

REPORT INFORMATION
  Report Type: Spontaneous
  Country: US (occurrence: US)
  Receive Date: 20211018
  Receipt Date: 20211019
  Transmission Date: 20220303
  Serious: Yes (Death, Other)
  Sender: FDA-Public Use
  Company Number: US-PFIZER INC-2020297031

PATIENT
  Age: 78 Year
  Sex: Female
  Weight: 56.69 kg

DRUGS (4)
  1. IBRANCE [Suspect]
     Active Substance: PALBOCICLIB
     Indication: Breast cancer metastatic
     Dosage: 125 MG, CYCLIC (125 MG DAILY, 1-21 Q (EVERY) 28 DAYS)
     Route: 048
     Dates: start: 20210602, end: 20210811
  2. GABAPENTIN [Concomitant]
     Active Substance: GABAPENTIN
     Indication: Neuropathy peripheral
     Dosage: 300 MG, 2X/DAY
     Dates: start: 20210325
  3. KLOR-CON [Concomitant]
     Active Substance: POTASSIUM CHLORIDE
     Indication: Swelling
     Dosage: 20 MEQ, 1X/DAY
     Dates: start: 20210811
  4. LASIX [Concomitant]
     Active Substance: FUROSEMIDE
     Indication: Swelling
     Dosage: 20 MG, 1X/DAY
     Dates: start: 20210811

REACTIONS (2)
  - Neoplasm progression [Fatal]
  - Ascites [Unknown]

NARRATIVE: CASE EVENT DATE: 20210716
